FAERS Safety Report 5763793-7 (Version None)
Quarter: 2008Q2

REPORT INFORMATION
  Report Type: 
  Country: None (occurrence: None)
  Receive Date: 20080604
  Receipt Date: 20080604
  Transmission Date: 20081010
  Serious: Yes (Death)
  Sender: FDA-Public Use
  Company Number: None

PATIENT
  Sex: Male
  Weight: 113.3993 kg

DRUGS (1)
  1. TARCEVA [Suspect]
     Indication: NON-SMALL CELL LUNG CANCER
     Dosage: 150 MG EVERY DAY PO
     Route: 048
     Dates: start: 20071205, end: 20071209

REACTIONS (2)
  - MYOCARDIAL INFARCTION [None]
  - PULMONARY ALVEOLAR HAEMORRHAGE [None]
